FAERS Safety Report 4954741-8 (Version None)
Quarter: 2006Q1

REPORT INFORMATION
  Report Type: 
  Country: None (occurrence: None)
  Receive Date: 20060327
  Receipt Date: 20060111
  Transmission Date: 20060701
  Serious: Yes (Death, Hospitalization)
  Sender: FDA-Public Use
  Company Number: JP-BOEHRINGER INGELHEIM PHARMACEUTICALS, INC.-2006-BP-00320NB

PATIENT
  Age: 75 Year
  Sex: Male
  Weight: 40 kg

DRUGS (7)
  1. SPIRIVA [Suspect]
     Indication: EMPHYSEMA
     Route: 055
     Dates: start: 20051202, end: 20051226
  2. ACINON [Concomitant]
     Indication: GASTRITIS
     Route: 048
     Dates: start: 20050609, end: 20051227
  3. MYSLEE [Concomitant]
     Indication: INSOMNIA
     Route: 048
     Dates: start: 20050613, end: 20051227
  4. FERROMIA (SODIUM FERROUS CITRATE) [Concomitant]
     Indication: IRON DEFICIENCY ANAEMIA
     Route: 048
     Dates: start: 20050717, end: 20051227
  5. MAGNESIUM OXIDE [Concomitant]
     Indication: CONSTIPATION
     Route: 048
     Dates: start: 20050811, end: 20051227
  6. NAIXAN (NAPROXEN) [Concomitant]
     Indication: CONSTIPATION
     Route: 048
     Dates: start: 20051114, end: 20051227
  7. HOKUNALIN-TAPE (TULOBUTEROL) [Concomitant]
     Indication: EMPHYSEMA
     Route: 048
     Dates: start: 20051122

REACTIONS (2)
  - DEATH [None]
  - DYSURIA [None]
